FAERS Safety Report 24867489 (Version 2)
Quarter: 2025Q1

REPORT INFORMATION
  Report Type: Spontaneous
  Country: US (occurrence: US)
  Receive Date: 20250121
  Receipt Date: 20250307
  Transmission Date: 20250408
  Serious: Yes (Other)
  Sender: BAUSCH AND LOMB
  Company Number: US-BAUSCHBL-2025BNL000711

PATIENT
  Sex: Male

DRUGS (2)
  1. LUMIFY [Suspect]
     Active Substance: BRIMONIDINE TARTRATE
     Indication: Product used for unknown indication
     Route: 047
  2. LUMIFY [Suspect]
     Active Substance: BRIMONIDINE TARTRATE

REACTIONS (7)
  - Blindness [Unknown]
  - Vision blurred [Recovered/Resolved]
  - Ocular hyperaemia [Recovered/Resolved]
  - Visual impairment [Unknown]
  - Periorbital swelling [Unknown]
  - Eye swelling [Unknown]
  - Product quality issue [Unknown]

NARRATIVE: CASE EVENT DATE: 20250101
